FAERS Safety Report 9135291 (Version 1)
Quarter: 2013Q1

REPORT INFORMATION
  Report Type: Spontaneous
  Country: None (occurrence: US)
  Receive Date: 20130304
  Receipt Date: 20130304
  Transmission Date: 20140127
  Serious: No
  Sender: FDA-Public Use
  Company Number: US-ALLERGAN-1200756US

PATIENT
  Sex: Male

DRUGS (1)
  1. TAZORAC [Suspect]
     Indication: ANOGENITAL WARTS
     Dosage: UNK
     Route: 061
     Dates: start: 201201

REACTIONS (4)
  - Skin exfoliation [Not Recovered/Not Resolved]
  - Erythema [Not Recovered/Not Resolved]
  - Genital discomfort [Not Recovered/Not Resolved]
  - Off label use [Unknown]
